FAERS Safety Report 5084473-X (Version None)
Quarter: 2006Q3

REPORT INFORMATION
  Report Type: 
  Country: None (occurrence: None)
  Receive Date: 20060821
  Receipt Date: 20060816
  Transmission Date: 20061208
  Serious: Yes (Hospitalization)
  Sender: FDA-Public Use
  Company Number: FR-AVENTIS-200612823FR

PATIENT
  Age: 9 Year
  Sex: Female
  Weight: 21 kg

DRUGS (5)
  1. FLAGYL [Suspect]
     Indication: CELLULITIS
     Route: 048
     Dates: start: 20060721, end: 20060724
  2. FOSFOCINE [Suspect]
     Indication: CELLULITIS
     Route: 042
     Dates: start: 20060720, end: 20060725
  3. CLAFORAN [Suspect]
     Indication: CELLULITIS
     Route: 042
     Dates: start: 20060720, end: 20060725
  4. AUGMENTIN [Concomitant]
     Indication: CELLULITIS
     Route: 042
     Dates: start: 20060719, end: 20060720
  5. ACETAMINOPHEN [Concomitant]
     Indication: CELLULITIS
     Route: 042
     Dates: start: 20060719, end: 20060720

REACTIONS (2)
  - LEUKOPENIA [None]
  - NEUTROPENIA [None]
